FAERS Safety Report 24422457 (Version 1)
Quarter: 2024Q4

REPORT INFORMATION
  Report Type: Spontaneous
  Country: US (occurrence: None)
  Receive Date: 20241009
  Receipt Date: 20241009
  Transmission Date: 20250115
  Serious: No
  Sender: Public
  Company Number: None

PATIENT
  Age: 43 Year
  Sex: Male

DRUGS (2)
  1. DOXYLAMINE SUCCINATE [Suspect]
     Active Substance: DOXYLAMINE SUCCINATE
     Indication: Sleep disorder
  2. IBUPROFEN [Suspect]
     Active Substance: IBUPROFEN
     Indication: Pain

REACTIONS (9)
  - Overdose [None]
  - Acute kidney injury [None]
  - Respiratory depression [None]
  - Seizure [None]
  - Pulmonary oedema [None]
  - Pneumonia [None]
  - Hypotension [None]
  - Electrocardiogram abnormal [None]
  - Ejection fraction decreased [None]

NARRATIVE: CASE EVENT DATE: 20240531
